FAERS Safety Report 4723489-7 (Version None)
Quarter: 2005Q3

REPORT INFORMATION
  Report Type: 
  Country: None (occurrence: None)
  Receive Date: 20050725
  Receipt Date: 20050719
  Transmission Date: 20060218
  Serious: Yes (Hospitalization)
  Sender: FDA-Public Use
  Company Number: D01200505026

PATIENT
  Age: 45 Year

DRUGS (7)
  1. FONDAPARINUX SODIUM [Suspect]
     Indication: ACUTE MYOCARDIAL INFARCTION
     Dosage: 2.5MG PER DAY
     Route: 058
     Dates: start: 20050703
  2. ASPIRIN [Concomitant]
  3. ENALAPRIL [Concomitant]
  4. SORBITRATE [Concomitant]
  5. NICORANDIL [Concomitant]
  6. CLOPIDOGREL BISULFATE [Concomitant]
  7. FRUSEMIDE [Concomitant]

REACTIONS (2)
  - RENAL FAILURE ACUTE [None]
  - RENAL TUBULAR NECROSIS [None]
